FAERS Safety Report 12597133 (Version 1)
Quarter: 2016Q3

REPORT INFORMATION
  Report Type: Spontaneous
  Country: US (occurrence: US)
  Receive Date: 20160727
  Receipt Date: 20160727
  Transmission Date: 20161109
  Serious: Yes (Other)
  Sender: FDA-Public Use
  Company Number: US-AMGEN-USASP2016095006

PATIENT

DRUGS (1)
  1. REPATHA [Suspect]
     Active Substance: EVOLOCUMAB
     Indication: PRODUCT USED FOR UNKNOWN INDICATION
     Dosage: 140 MG, Q2WK
     Route: 065

REACTIONS (12)
  - Visual impairment [Unknown]
  - Cognitive disorder [Unknown]
  - Anxiety [Unknown]
  - Polyneuropathy [Unknown]
  - Deafness [Unknown]
  - Insomnia [Unknown]
  - Confusional state [Unknown]
  - Vertigo [Unknown]
  - Balance disorder [Unknown]
  - Depression [Unknown]
  - Blood testosterone decreased [Unknown]
  - Fatigue [Unknown]
